FAERS Safety Report 23891914 (Version 1)
Quarter: 2024Q2

REPORT INFORMATION
  Report Type: Spontaneous
  Country: US (occurrence: US)
  Receive Date: 20240524
  Receipt Date: 20240524
  Transmission Date: 20240716
  Serious: No
  Sender: FDA-Public Use
  Company Number: US-BIOGEN-2024BI01265740

PATIENT
  Sex: Female

DRUGS (1)
  1. SKYCLARYS [Suspect]
     Active Substance: OMAVELOXOLONE
     Indication: Product used for unknown indication
     Route: 050
     Dates: start: 202307

REACTIONS (7)
  - Headache [Unknown]
  - Weight increased [Unknown]
  - Abdominal pain [Unknown]
  - Product dose omission issue [Unknown]
  - Dizziness [Unknown]
  - Tremor [Unknown]
  - Tremor [Unknown]
